FAERS Safety Report 18459547 (Version 1)
Quarter: 2020Q4

REPORT INFORMATION
  Report Type: Spontaneous
  Country: JP (occurrence: JP)
  Receive Date: 20201103
  Receipt Date: 20201103
  Transmission Date: 20210114
  Serious: Yes (Life-Threatening, Other)
  Sender: FDA-Public Use
  Company Number: JP-JAZZ-2020-JP-014303

PATIENT
  Age: 58 Year
  Sex: Female
  Weight: 40 kg

DRUGS (4)
  1. DEFITELIO [Suspect]
     Active Substance: DEFIBROTIDE SODIUM
     Dosage: 20 MG/KG DAILY
     Route: 042
     Dates: start: 20200503, end: 202005
  2. DEFITELIO [Suspect]
     Active Substance: DEFIBROTIDE SODIUM
     Indication: VENOOCCLUSIVE LIVER DISEASE
     Dosage: 10 MG/KG DAILY
     Route: 042
     Dates: start: 20200502, end: 20200502
  3. DEFITELIO [Suspect]
     Active Substance: DEFIBROTIDE SODIUM
     Dosage: 04 MG/KG DAILY
     Route: 042
     Dates: start: 20200520, end: 20200520
  4. DEFITELIO [Suspect]
     Active Substance: DEFIBROTIDE SODIUM
     Dosage: 10 MG/KG DAILY
     Route: 042
     Dates: start: 20200519, end: 20200519

REACTIONS (3)
  - Off label use [Unknown]
  - Intra-abdominal haemorrhage [Recovering/Resolving]
  - Renal failure [Unknown]

NARRATIVE: CASE EVENT DATE: 20200502
